FAERS Safety Report 15004167 (Version 1)
Quarter: 2018Q2

REPORT INFORMATION
  Report Type: Report from Study
  Country: None (occurrence: BR)
  Receive Date: 20180613
  Receipt Date: 20180613
  Transmission Date: 20180711
  Serious: Yes (Other)
  Sender: FDA-Public Use
  Company Number: BR-ABBVIE-18K-020-2382624-00

PATIENT
  Age: 43 Year
  Sex: Male
  Weight: 60 kg

DRUGS (3)
  1. HUMIRA [Suspect]
     Active Substance: ADALIMUMAB
     Indication: ANKYLOSING SPONDYLITIS
     Route: 058
     Dates: start: 20171124
  2. HUMIRA [Suspect]
     Active Substance: ADALIMUMAB
     Route: 058
     Dates: start: 201803
  3. NAPROXEN (NON-ABBVIE) [Concomitant]
     Indication: PAIN

REACTIONS (9)
  - Spinal pain [Recovering/Resolving]
  - Limb discomfort [Recovered/Resolved]
  - Arthralgia [Recovering/Resolving]
  - Weight fluctuation [Unknown]
  - Joint instability [Recovering/Resolving]
  - Impaired work ability [Unknown]
  - Pain in extremity [Recovering/Resolving]
  - Dysstasia [Recovered/Resolved]
  - Pain [Recovered/Resolved]

NARRATIVE: CASE EVENT DATE: 201804
